FAERS Safety Report 17040898 (Version 5)
Quarter: 2021Q4

REPORT INFORMATION
  Report Type: Spontaneous
  Country: RS (occurrence: RS)
  Receive Date: 20191118
  Receipt Date: 20211230
  Transmission Date: 20220303
  Serious: Yes (Death, Hospitalization, Other)
  Sender: FDA-Public Use
  Company Number: RS-BOEHRINGERINGELHEIM-2019-BI-113393

PATIENT
  Sex: Male

DRUGS (1)
  1. PRADAXA [Suspect]
     Active Substance: DABIGATRAN ETEXILATE MESYLATE
     Indication: Venous thrombosis limb
     Route: 065
     Dates: start: 20191016, end: 20191111

REACTIONS (4)
  - Cardiac tamponade [Fatal]
  - Pericardial effusion [Unknown]
  - Renal failure [Unknown]
  - Overdose [Unknown]
